FAERS Safety Report 21783102 (Version 1)
Quarter: 2022Q4

REPORT INFORMATION
  Report Type: Spontaneous
  Country: US (occurrence: None)
  Receive Date: 20221223
  Receipt Date: 20221223
  Transmission Date: 20230113
  Serious: Yes (Life-Threatening, Hospitalization, Disabling)
  Sender: FDA-Public Use
  Company Number: None

PATIENT
  Age: 25 Year
  Sex: Male
  Weight: 78.75 kg

DRUGS (5)
  1. XIFAXAN [Suspect]
     Active Substance: RIFAXIMIN
     Indication: Irritable bowel syndrome
  2. IMODIUM [Suspect]
     Active Substance: LOPERAMIDE HYDROCHLORIDE
  3. ZINC [Concomitant]
     Active Substance: ZINC
  4. CREATINE [Concomitant]
     Active Substance: CREATINE
  5. IRON [Concomitant]
     Active Substance: IRON

REACTIONS (13)
  - Irritable bowel syndrome [None]
  - Pyrexia [None]
  - Somnolence [None]
  - Waist circumference increased [None]
  - Protein intolerance [None]
  - Fat intolerance [None]
  - Sleep paralysis [None]
  - Sleep terror [None]
  - General physical health deterioration [None]
  - Septic shock [None]
  - Intestinal barrier dysfunction [None]
  - Lipid metabolism disorder [None]
  - Probiotic therapy [None]

NARRATIVE: CASE EVENT DATE: 20120101
